FAERS Safety Report 20429668 (Version 1)
Quarter: 2022Q1

REPORT INFORMATION
  Report Type: Report from Study
  Country: FR (occurrence: FR)
  Receive Date: 20220204
  Receipt Date: 20220204
  Transmission Date: 20220424
  Serious: Yes (Other)
  Sender: FDA-Public Use
  Company Number: FR-SERVIER-S19008992

PATIENT

DRUGS (6)
  1. ONCASPAR [Suspect]
     Active Substance: PEGASPARGASE
     Indication: Acute lymphocytic leukaemia
     Dosage: 1350 IU, ON D8, D36, D64
     Route: 042
     Dates: start: 20170918, end: 20171115
  2. TN UNSPECIFIED [Concomitant]
     Indication: Acute lymphocytic leukaemia
     Dosage: 0.8 MG, ON D1, D8, D29, D36, D57, D64
     Route: 042
     Dates: start: 20170911, end: 20171115
  3. TN UNSPECIFIED [Concomitant]
     Indication: Acute lymphocytic leukaemia
     Dosage: 3 MG QD FROM D1 TO D5, FROM D29 TO D33 AND FROM D57 TO D61
     Route: 048
     Dates: start: 20170911, end: 20171111
  4. TN UNSPECIFIED [Concomitant]
     Indication: Acute lymphocytic leukaemia
     Dosage: 30 MG QD FROM D1 TO D22, FROM D29 TO D49 AND FROM D57 TO D77
     Route: 048
     Dates: start: 20170911, end: 20171128
  5. TN UNSPECIFIED [Concomitant]
     Indication: Acute lymphocytic leukaemia
     Dosage: 12.5 MG, ON D2, D30, D58
     Route: 037
     Dates: start: 20170912, end: 20171107
  6. TN UNSPECIFIED [Concomitant]
     Dosage: 12.5 MG, ON D15, D36, D43, D50, D64, D71
     Route: 048
     Dates: start: 20170925, end: 20171129

REACTIONS (1)
  - Gamma-glutamyltransferase increased [Recovered/Resolved]

NARRATIVE: CASE EVENT DATE: 20171115
